FAERS Safety Report 16168193 (Version 1)
Quarter: 2019Q2

REPORT INFORMATION
  Report Type: Spontaneous
  Country: US (occurrence: US)
  Receive Date: 20190408
  Receipt Date: 20190408
  Transmission Date: 20190711
  Serious: No
  Sender: FDA-Public Use
  Company Number: US-PFIZER INC-2019145657

PATIENT
  Sex: Female
  Weight: 50 kg

DRUGS (1)
  1. TOLTERODINE TARTRATE. [Suspect]
     Active Substance: TOLTERODINE TARTRATE
     Indication: MICTURITION DISORDER
     Dosage: 4 MG, 1X/DAY
     Route: 048

REACTIONS (5)
  - Asthenia [Unknown]
  - Drug ineffective [Unknown]
  - Pollakiuria [Unknown]
  - Feeling abnormal [Unknown]
  - Pain [Unknown]
